FAERS Safety Report 5962879-1 (Version None)
Quarter: 2008Q4

REPORT INFORMATION
  Report Type: 
  Country: None (occurrence: None)
  Receive Date: 20081120
  Receipt Date: 20081110
  Transmission Date: 20090506
  Serious: No
  Sender: FDA-Public Use
  Company Number: 232460J08USA

PATIENT
  Age: 48 Year
  Sex: Female
  Weight: 82 kg

DRUGS (8)
  1. REBIF [Suspect]
     Indication: MULTIPLE SCLEROSIS
     Dosage: 44 MCG, 3 IN 1 WEEKS, SUBCUTANEOUS
     Route: 058
     Dates: start: 20070907
  2. LITHIUM CARBONATE [Suspect]
     Indication: BIPOLAR DISORDER
     Dosage: 300 MG, 2 IN 1 DAYS, ORAL
     Route: 048
     Dates: start: 19961101, end: 20071101
  3. TEGRETOL [Concomitant]
  4. WELLBUTRIN [Concomitant]
  5. ATACAND [Concomitant]
  6. QUINAPRIL HCL [Concomitant]
  7. ASPIRIN [Suspect]
     Indication: PAIN
  8. MAGNETIC RESONANCE IMAGING CONTRAST [Suspect]

REACTIONS (4)
  - HYPERTENSION [None]
  - MULTIPLE SCLEROSIS [None]
  - NEURALGIA [None]
  - RENAL IMPAIRMENT [None]
